FAERS Safety Report 4919790-4 (Version None)
Quarter: 2006Q1

REPORT INFORMATION
  Report Type: 
  Country: None (occurrence: None)
  Receive Date: 20060216
  Receipt Date: 20060127
  Transmission Date: 20060701
  Serious: Yes (Hospitalization)
  Sender: FDA-Public Use
  Company Number: JP_030901741

PATIENT
  Age: 69 Year
  Sex: Male
  Weight: 22.952 kg

DRUGS (1)
  1. GEMZAR [Suspect]
     Indication: PANCREATIC CARCINOMA
     Dosage: 1600 MG, OTHER, INTRAVENOUS
     Route: 042
     Dates: start: 20030226, end: 20030305

REACTIONS (12)
  - BLOOD CULTURE POSITIVE [None]
  - CEREBRAL INFARCTION [None]
  - DISEASE PROGRESSION [None]
  - DYSLALIA [None]
  - DYSPHAGIA [None]
  - DYSPNOEA [None]
  - ESCHERICHIA INFECTION [None]
  - MALIGNANT PLEURAL EFFUSION [None]
  - MUSCULAR WEAKNESS [None]
  - ORAL INTAKE REDUCED [None]
  - ORTHOPNOEA [None]
  - PYREXIA [None]
